FAERS Safety Report 15176727 (Version 1)
Quarter: 2018Q3

REPORT INFORMATION
  Report Type: Report from Study
  Country: US (occurrence: US)
  Receive Date: 20180720
  Receipt Date: 20180720
  Transmission Date: 20181010
  Serious: No
  Sender: FDA-Public Use
  Company Number: US-AMGEN-USASL2018076793

PATIENT
  Sex: Male

DRUGS (1)
  1. REPATHA [Suspect]
     Active Substance: EVOLOCUMAB
     Indication: BLOOD CHOLESTEROL ABNORMAL
     Dosage: 140 MG, Q3WK
     Route: 065

REACTIONS (7)
  - Hypoaesthesia [Unknown]
  - Fatigue [Unknown]
  - Off label use [Unknown]
  - Coordination abnormal [Unknown]
  - Muscle spasms [Recovering/Resolving]
  - Back pain [Recovering/Resolving]
  - Affect lability [Unknown]
